FAERS Safety Report 11698052 (Version 1)
Quarter: 2015Q4

REPORT INFORMATION
  Report Type: Spontaneous
  Country: US (occurrence: US)
  Receive Date: 20151104
  Receipt Date: 20151104
  Transmission Date: 20160304
  Serious: No
  Sender: FDA-Public Use
  Company Number: US-ASTRAZENECA-2015SF03681

PATIENT
  Sex: Male

DRUGS (2)
  1. ASPIRIN. [Concomitant]
     Active Substance: ASPIRIN
  2. BRILINTA [Suspect]
     Active Substance: TICAGRELOR
     Route: 048

REACTIONS (3)
  - Erythema [Unknown]
  - Acne [Unknown]
  - Pruritus generalised [Unknown]
